FAERS Safety Report 16288525 (Version 1)
Quarter: 2019Q2

REPORT INFORMATION
  Report Type: Spontaneous
  Country: GB (occurrence: GB)
  Receive Date: 20190509
  Receipt Date: 20190509
  Transmission Date: 20190711
  Serious: Yes (Other)
  Sender: FDA-Public Use
  Company Number: GB-SUN PHARMACEUTICAL INDUSTRIES LTD-2019RR-207417

PATIENT
  Age: 63 Year
  Sex: Female
  Weight: 57.15 kg

DRUGS (1)
  1. RANITIDINE. [Suspect]
     Active Substance: RANITIDINE
     Indication: GASTROOESOPHAGEAL REFLUX DISEASE
     Dosage: 300 MILLIGRAM, DAILY
     Route: 048
     Dates: start: 20180808, end: 20190403

REACTIONS (2)
  - Libido decreased [Recovering/Resolving]
  - Anorgasmia [Recovering/Resolving]

NARRATIVE: CASE EVENT DATE: 20190109
